FAERS Safety Report 15777769 (Version 6)
Quarter: 2019Q1

REPORT INFORMATION
  Report Type: Spontaneous
  Country: DE (occurrence: DE)
  Receive Date: 20181231
  Receipt Date: 20190128
  Transmission Date: 20190417
  Serious: Yes (Other)
  Sender: FDA-Public Use
  Company Number: PHHY2018DE166369

PATIENT
  Age: 68 Year
  Sex: Male

DRUGS (19)
  1. GABAPENTIN. [Suspect]
     Active Substance: GABAPENTIN
     Indication: TRIGEMINAL NEURALGIA
     Dosage: 1800 MG, QD 600-300-300 MG,THE MAN TOOK INCREASED DOSE UPTO 2400 MG/DAY
     Route: 065
  2. AMBROXOL [Suspect]
     Active Substance: AMBROXOL
     Indication: POST HERPETIC NEURALGIA
     Dosage: 20 %, OINTMENT
     Route: 061
  3. AMITRIPTYLINE [Suspect]
     Active Substance: AMITRIPTYLINE
     Indication: TRIGEMINAL NEURALGIA
     Dosage: 20 MG, UNK
     Route: 065
  4. OXCARBAZEPINE. [Suspect]
     Active Substance: OXCARBAZEPINE
     Indication: TRIGEMINAL NEURALGIA
     Dosage: 600 MG, 4X150 LATER REDUCED TO 2X150 MG
     Route: 065
  5. TAPENTADOL HYDROCHLORIDE [Suspect]
     Active Substance: TAPENTADOL HYDROCHLORIDE
     Indication: POST HERPETIC NEURALGIA
     Dosage: 150-150-200 MG; LATER REDUCED TO 100-100-200 MG, TID
     Route: 065
  6. PREGABALIN. [Suspect]
     Active Substance: PREGABALIN
     Indication: POST HERPETIC NEURALGIA
  7. OXCARBAZEPINE. [Suspect]
     Active Substance: OXCARBAZEPINE
     Indication: POST HERPETIC NEURALGIA
     Dosage: 300 MG, QD (2X150MG)
     Route: 065
  8. DEXAMETHASONE. [Suspect]
     Active Substance: DEXAMETHASONE
     Indication: POST HERPETIC NEURALGIA
     Dosage: UNK
     Route: 065
  9. ACICLOVIR [Suspect]
     Active Substance: ACYCLOVIR
     Indication: HERPES ZOSTER
  10. CAPSAICIN. [Suspect]
     Active Substance: CAPSAICIN
     Indication: POST HERPETIC NEURALGIA
     Dosage: UNK
     Route: 061
  11. TAPENTADOL HYDROCHLORIDE [Suspect]
     Active Substance: TAPENTADOL HYDROCHLORIDE
     Dosage: 100-100-200 MG (AFTER 8 MONTHS), TID
     Route: 065
  12. AMITRIPTYLINE [Suspect]
     Active Substance: AMITRIPTYLINE
     Indication: POST HERPETIC NEURALGIA
     Dosage: 25 MG, 10 DROPS
     Route: 065
  13. PREGABALIN. [Suspect]
     Active Substance: PREGABALIN
     Indication: TRIGEMINAL NEURALGIA
     Dosage: UNK
     Route: 065
  14. DEXKETOPROFEN [Concomitant]
     Active Substance: DEXKETOPROFEN
     Indication: POST HERPETIC NEURALGIA
     Dosage: UKN,FOR 60 MINUTES
     Route: 050
  15. GABAPENTIN. [Suspect]
     Active Substance: GABAPENTIN
     Dosage: 2400 MG, QD
     Route: 065
  16. HYDROMORPHONE [Suspect]
     Active Substance: HYDROMORPHONE
     Indication: TRIGEMINAL NEURALGIA
     Dosage: 8 MG, UNK (4-0-4 MG)
     Route: 065
  17. ACICLOVIR [Suspect]
     Active Substance: ACYCLOVIR
     Indication: TRIGEMINAL NEURALGIA
     Dosage: UNK
     Route: 065
  18. LIDOCAINE. [Suspect]
     Active Substance: LIDOCAINE
     Indication: TRIGEMINAL NEURALGIA
     Dosage: UNK UNK, QHS
     Route: 061
  19. TAPENTADOL HYDROCHLORIDE [Suspect]
     Active Substance: TAPENTADOL HYDROCHLORIDE
     Indication: TRIGEMINAL NEURALGIA
     Dosage: 500 MG, QD (100-100-200 MG)
     Route: 065

REACTIONS (25)
  - Depression [Unknown]
  - Constipation [Unknown]
  - Benign prostatic hyperplasia [Unknown]
  - Confusional state [Unknown]
  - Osteoarthritis [Unknown]
  - Atrial fibrillation [Unknown]
  - Blood creatinine increased [Unknown]
  - Burning sensation [Unknown]
  - Drug effect incomplete [Unknown]
  - Glaucoma [Unknown]
  - Fall [Unknown]
  - Drug eruption [Unknown]
  - Off label use [Unknown]
  - Intentional product use issue [Unknown]
  - Fatigue [Unknown]
  - Sleep apnoea syndrome [Recovered/Resolved]
  - Quality of life decreased [Unknown]
  - Insomnia [Unknown]
  - Nasopharyngitis [Unknown]
  - Hypoaesthesia [Unknown]
  - Hyperaesthesia [Unknown]
  - Erythema [Unknown]
  - Drug ineffective [Unknown]
  - Sleep deficit [Recovered/Resolved]
  - Liver function test increased [Unknown]
